FAERS Safety Report 4381354-1 (Version None)
Quarter: 2004Q2

REPORT INFORMATION
  Report Type: 
  Country: None (occurrence: None)
  Receive Date: 20040616
  Receipt Date: 20040601
  Transmission Date: 20050107
  Serious: Yes (Hospitalization, Other)
  Sender: FDA-Public Use
  Company Number: USA020515979

PATIENT
  Age: 71 Year
  Sex: Female
  Weight: 57 kg

DRUGS (14)
  1. FORTEO [Suspect]
     Indication: OSTEOPOROSIS
     Dosage: 20 UG/1 DAY
     Dates: start: 20030601
  2. EVISTA [Suspect]
     Indication: OSTEOPOROSIS
     Dosage: 60 MG 1/DAY
     Dates: start: 20010501, end: 20020519
  3. PRILOSEC [Concomitant]
  4. BENADRYL [Concomitant]
  5. SYNTHROID [Concomitant]
  6. PLAVIX [Concomitant]
  7. LOPRESSOR [Concomitant]
  8. DURAGESIC [Concomitant]
  9. VICODIN [Concomitant]
  10. TOPROL-XL [Concomitant]
  11. PROTONIX [Concomitant]
  12. LEVOXYL [Concomitant]
  13. FLONASE [Concomitant]
  14. CIPROFLOXACIN [Concomitant]

REACTIONS (15)
  - ANGINA UNSTABLE [None]
  - BALANCE DISORDER [None]
  - CHEST PAIN [None]
  - CONCUSSION [None]
  - CONDITION AGGRAVATED [None]
  - FALL [None]
  - HOT FLUSH [None]
  - HYPERHIDROSIS [None]
  - INJECTION SITE HAEMORRHAGE [None]
  - NAUSEA [None]
  - PHARMACEUTICAL PRODUCT COMPLAINT [None]
  - RIB FRACTURE [None]
  - SKULL FRACTURE [None]
  - STOMACH DISCOMFORT [None]
  - VISUAL DISTURBANCE [None]
